FAERS Safety Report 20474190 (Version 5)
Quarter: 2023Q4

REPORT INFORMATION
  Report Type: Spontaneous
  Country: US (occurrence: US)
  Receive Date: 20220215
  Receipt Date: 20231023
  Transmission Date: 20240110
  Serious: Yes (Hospitalization, Other)
  Sender: FDA-Public Use
  Company Number: US-PFIZER INC-202200213354

PATIENT
  Age: 22 Year
  Sex: Male
  Weight: 156.5 kg

DRUGS (3)
  1. ZARONTIN [Suspect]
     Active Substance: ETHOSUXIMIDE
     Indication: Epilepsy
     Dosage: 750 MG TWICE DAILY, MORNING AND EVENING
  2. ZARONTIN [Suspect]
     Active Substance: ETHOSUXIMIDE
     Indication: Seizure
  3. ZARONTIN [Suspect]
     Active Substance: ETHOSUXIMIDE
     Indication: Myoclonus

REACTIONS (2)
  - Off label use [Unknown]
  - Drug ineffective for unapproved indication [Unknown]

NARRATIVE: CASE EVENT DATE: 20220101
